FAERS Safety Report 11313626 (Version 1)
Quarter: 2015Q3

REPORT INFORMATION
  Report Type: Spontaneous
  Country: US (occurrence: US)
  Receive Date: 20150727
  Receipt Date: 20150727
  Transmission Date: 20151125
  Serious: No
  Sender: FDA-Public Use
  Company Number: US-ABBVIE-15P-163-1424073-00

PATIENT

DRUGS (1)
  1. SYNTHROID [Suspect]
     Active Substance: LEVOTHYROXINE SODIUM
     Indication: THYROID DISORDER
     Route: 065

REACTIONS (5)
  - Osteoporosis [Unknown]
  - Autoimmune disorder [Unknown]
  - Drug hypersensitivity [Unknown]
  - Thyroid disorder [Unknown]
  - Cardiac disorder [Unknown]
